APPROVED DRUG PRODUCT: CARISOPRODOL
Active Ingredient: CARISOPRODOL
Strength: 350MG
Dosage Form/Route: TABLET;ORAL
Application: A040755 | Product #001
Applicant: SUN PHARMACEUTICAL INDUSTRIES LTD
Approved: Feb 27, 2007 | RLD: No | RS: No | Type: DISCN